FAERS Safety Report 4811749-0 (Version None)
Quarter: 2005Q4

REPORT INFORMATION
  Report Type: 
  Country: None (occurrence: None)
  Receive Date: 20051026
  Receipt Date: 20051011
  Transmission Date: 20060501
  Serious: Yes (Hospitalization, Other)
  Sender: FDA-Public Use
  Company Number: EWC050946011

PATIENT
  Age: 57 Year
  Sex: Male
  Weight: 97 kg

DRUGS (5)
  1. GEMZAR [Suspect]
     Indication: TRANSITIONAL CELL CARCINOMA
     Dosage: 2000 MG/M2/2 OTHER
     Route: 050
     Dates: start: 20050524
  2. CARBOPLATIN [Suspect]
     Indication: TRANSITIONAL CELL CARCINOMA
     Dosage: 250 MG/M2/1 OTHER
     Route: 050
     Dates: start: 20050524
  3. FUROSEMIDE [Concomitant]
  4. ACENOCOUMAROL [Concomitant]
  5. NEURONTIN [Concomitant]

REACTIONS (7)
  - ANAEMIA [None]
  - BLOOD CREATININE INCREASED [None]
  - HAEMOLYTIC URAEMIC SYNDROME [None]
  - HEPATIC FUNCTION ABNORMAL [None]
  - METASTASES TO CENTRAL NERVOUS SYSTEM [None]
  - THROMBOTIC THROMBOCYTOPENIC PURPURA [None]
  - TRANSITIONAL CELL CARCINOMA [None]
